FAERS Safety Report 11665052 (Version 5)
Quarter: 2016Q1

REPORT INFORMATION
  Report Type: Report from Study
  Country: CA (occurrence: CA)
  Receive Date: 20151027
  Receipt Date: 20160318
  Transmission Date: 20160525
  Serious: Yes (Other)
  Sender: FDA-Public Use
  Company Number: CA-SA-2015SA141130

PATIENT
  Age: 51 Year
  Sex: Female

DRUGS (27)
  1. NAPROXEN. [Concomitant]
     Active Substance: NAPROXEN
     Dosage: FREQ. BID; PRN
     Route: 048
  2. VENLAFAXINE [Concomitant]
     Active Substance: VENLAFAXINE HYDROCHLORIDE
     Dosage: QAM
     Route: 048
  3. BACLOFEN. [Concomitant]
     Active Substance: BACLOFEN
     Route: 048
  4. SENNOSIDES. [Concomitant]
     Active Substance: SENNOSIDES
     Dosage: 8.5 MG 3 TABS BID
     Route: 048
  5. ALPRAZOLAM. [Concomitant]
     Active Substance: ALPRAZOLAM
     Dosage: 1-2 TABLETS
     Route: 048
  6. CETIRIZINE [Concomitant]
     Active Substance: CETIRIZINE HYDROCHLORIDE
     Indication: PREMEDICATION
     Dosage: STOPPED ON UNKNOWN DATE IN SEP-2015
     Route: 048
     Dates: start: 20150915
  7. ACYCLOVIR. [Concomitant]
     Active Substance: ACYCLOVIR
     Indication: ANTIVIRAL TREATMENT
     Route: 048
     Dates: start: 20150915
  8. TOPIRAMATE. [Concomitant]
     Active Substance: TOPIRAMATE
     Route: 048
  9. ZANTAC [Concomitant]
     Active Substance: RANITIDINE HYDROCHLORIDE
     Indication: PREMEDICATION
     Dosage: STOPPED ON UNKNOWN DATE IN SEP-2015
     Route: 048
     Dates: start: 20150915
  10. LEMTRADA [Suspect]
     Active Substance: ALEMTUZUMAB
     Indication: RELAPSING-REMITTING MULTIPLE SCLEROSIS
     Route: 041
     Dates: start: 20150914, end: 20150918
  11. SOLU-MEDROL [Concomitant]
     Active Substance: METHYLPREDNISOLONE SODIUM SUCCINATE
     Indication: RELAPSING-REMITTING MULTIPLE SCLEROSIS
     Route: 042
     Dates: start: 20150914, end: 20150918
  12. PANTOPRAZOLE [Concomitant]
     Active Substance: PANTOPRAZOLE SODIUM
     Dosage: QAM
     Route: 048
  13. VITAMIN D [Concomitant]
     Active Substance: CHOLECALCIFEROL
     Route: 048
  14. TEMAZEPAM. [Concomitant]
     Active Substance: TEMAZEPAM
     Route: 048
  15. VESICARE [Concomitant]
     Active Substance: SOLIFENACIN SUCCINATE
     Route: 048
  16. MELATONIN [Concomitant]
     Active Substance: MELATONIN
     Route: 048
  17. VITAMIN C [Concomitant]
     Active Substance: ASCORBIC ACID
     Route: 048
  18. NABILONE [Concomitant]
     Active Substance: NABILONE
     Route: 048
  19. ESTROGEL [Concomitant]
     Active Substance: ESTRADIOL
     Route: 061
  20. ZOPICLONE [Concomitant]
     Active Substance: ZOPICLONE
     Route: 048
  21. BENADRYL [Concomitant]
     Active Substance: DIPHENHYDRAMINE HYDROCHLORIDE
     Indication: PREMEDICATION
     Dosage: STOPPED ON UNKNOWN DATE IN SEP-2015
     Route: 042
     Dates: start: 20150915
  22. HYDROMORPH CONTIN [Concomitant]
     Active Substance: HYDROMORPHONE
     Route: 048
  23. ABILIFY [Concomitant]
     Active Substance: ARIPIPRAZOLE
     Dosage: QAM
     Route: 048
  24. PROMETRIUM [Concomitant]
     Active Substance: PROGESTERONE
     Route: 048
  25. DILAUDID [Concomitant]
     Active Substance: HYDROMORPHONE HYDROCHLORIDE
     Dosage: QID
     Route: 048
  26. MAGNESIUM [Concomitant]
     Active Substance: MAGNESIUM
     Route: 048
  27. COLACE [Concomitant]
     Active Substance: DOCUSATE SODIUM
     Route: 048

REACTIONS (26)
  - Migraine [Recovering/Resolving]
  - Erythema [Recovering/Resolving]
  - Drug ineffective [Unknown]
  - Vision blurred [Recovered/Resolved]
  - Hypersomnia [Not Recovered/Not Resolved]
  - Pruritus [Not Recovered/Not Resolved]
  - Haematemesis [Not Recovered/Not Resolved]
  - Eosinophil percentage increased [Unknown]
  - Chest discomfort [Not Recovered/Not Resolved]
  - Lymphopenia [Not Recovered/Not Resolved]
  - Feeling hot [Recovered/Resolved]
  - Gastrooesophageal reflux disease [Recovering/Resolving]
  - Insomnia [Recovered/Resolved]
  - Infection [Unknown]
  - Blood urine present [Unknown]
  - Abdominal pain upper [Not Recovered/Not Resolved]
  - Discomfort [Recovering/Resolving]
  - Urticaria [Recovered/Resolved]
  - Flushing [Not Recovered/Not Resolved]
  - Lymphocyte percentage decreased [Unknown]
  - Throat irritation [Recovering/Resolving]
  - Facial pain [Not Recovered/Not Resolved]
  - Faeces discoloured [Not Recovered/Not Resolved]
  - Neutrophil percentage increased [Unknown]
  - Headache [Not Recovered/Not Resolved]
  - Fatigue [Not Recovered/Not Resolved]

NARRATIVE: CASE EVENT DATE: 2015
